FAERS Safety Report 11081530 (Version 2)
Quarter: 2015Q2

REPORT INFORMATION
  Report Type: Spontaneous
  Country: FO (occurrence: DK)
  Receive Date: 20150501
  Receipt Date: 20150626
  Transmission Date: 20150821
  Serious: Yes (Death, Life-Threatening)
  Sender: FDA-Public Use
  Company Number: FO-PFIZER INC-2015148450

PATIENT
  Age: 81 Year
  Sex: Male
  Weight: 84 kg

DRUGS (9)
  1. HJERDYL [Suspect]
     Active Substance: ASPIRIN
     Dosage: 75 MG, 1X/DAY
     Route: 048
     Dates: start: 20150421, end: 20150422
  2. RAPILYSIN /01333701/ [Suspect]
     Active Substance: RETEPLASE
     Indication: ACUTE MYOCARDIAL INFARCTION
     Dosage: 10 IU SINGLE, IV BOLUS 2 TIMES IN 30 MINUTES INTERVAL
     Route: 042
     Dates: start: 20150421
  3. FRAGMIN [Suspect]
     Active Substance: DALTEPARIN SODIUM
     Indication: ACUTE MYOCARDIAL INFARCTION
     Dosage: PRESCRIBED DOSE: 120 IU/KG X 2, BUT UNCLEAR WHAT WAS ADMINISTERED. STRENGTH: 10000 IU/ML
     Dates: start: 20150421, end: 20150422
  4. CLOPIDOGREL ACTAVIS /01220704/ [Suspect]
     Active Substance: CLOPIDOGREL BESILATE
     Indication: ACUTE MYOCARDIAL INFARCTION
     Dosage: 300 MG, SINGLE
     Route: 048
     Dates: start: 20150421, end: 20150422
  5. AMLODIPIN ACTAVIS /00972404/ [Concomitant]
     Indication: HYPERTENSION
     Dosage: 5 MG, 1X/DAY
     Dates: start: 20100107, end: 20150421
  6. CLOPIDOGREL ACTAVIS /01220704/ [Suspect]
     Active Substance: CLOPIDOGREL BESILATE
     Dosage: 75 MG, 1X/DAY
     Route: 048
     Dates: start: 20150421, end: 20150422
  7. ELTROXIN [Concomitant]
     Active Substance: LEVOTHYROXINE
     Indication: HYPOTHYROIDISM
     Dosage: 0.1 MG, 1X/DAY
     Dates: start: 20120919, end: 20150421
  8. HJERDYL [Suspect]
     Active Substance: ASPIRIN
     Indication: ACUTE MYOCARDIAL INFARCTION
     Dosage: 300 MG, SINGLE
     Route: 048
     Dates: start: 20150421, end: 20150422
  9. CORODIL /00574902/ [Concomitant]
     Active Substance: DIPYRIDAMOLE
     Indication: HYPERTENSION
     Dosage: 5 MG, 1X/DAY
     Dates: start: 20120927, end: 20150421

REACTIONS (5)
  - Brain herniation [Not Recovered/Not Resolved]
  - Intracranial pressure increased [Fatal]
  - Cerebral haemorrhage [Fatal]
  - Cardiac arrest [Fatal]
  - Brain oedema [Not Recovered/Not Resolved]

NARRATIVE: CASE EVENT DATE: 20150422
